FAERS Safety Report 6853593-9 (Version None)
Quarter: 2010Q3

REPORT INFORMATION
  Report Type: 
  Country: None (occurrence: None)
  Receive Date: 20100717
  Receipt Date: 20071214
  Transmission Date: 20110219
  Serious: No
  Sender: FDA-Public Use
  Company Number: US-PFIZER INC-2007104621

PATIENT
  Sex: Male
  Weight: 77.272 kg

DRUGS (3)
  1. CHANTIX [Suspect]
     Indication: SMOKING CESSATION THERAPY
     Dates: start: 20071203
  2. ADVAIR DISKUS 100/50 [Concomitant]
  3. ALBUTEROL [Concomitant]

REACTIONS (6)
  - ANXIETY [None]
  - ERECTILE DYSFUNCTION [None]
  - FATIGUE [None]
  - FEELING HOT [None]
  - FLUSHING [None]
  - LIBIDO DECREASED [None]
